FAERS Safety Report 9301807 (Version 1)
Quarter: 2013Q2

REPORT INFORMATION
  Report Type: Spontaneous
  Country: US (occurrence: US)
  Receive Date: 20130521
  Receipt Date: 20130521
  Transmission Date: 20140414
  Serious: No
  Sender: FDA-Public Use
  Company Number: US-TEVA-339436USA

PATIENT
  Sex: Female
  Weight: 131.66 kg

DRUGS (14)
  1. FENTORA [Suspect]
     Indication: BREAKTHROUGH PAIN
     Dosage: 6/MONTH
     Route: 002
  2. FENTORA [Suspect]
     Indication: MIGRAINE
  3. LEVOTHYROXINE SODIUM [Concomitant]
     Indication: HYPOTHYROIDISM
     Dosage: 75 MILLIGRAM DAILY;
     Route: 048
  4. METFORMIN [Concomitant]
     Indication: POLYCYSTIC OVARIES
     Dosage: 1000 MILLIGRAM DAILY;
     Route: 048
  5. LISINOPRIL [Concomitant]
     Indication: BLOOD PRESSURE
     Route: 048
  6. METOPROLOL [Concomitant]
  7. LUXOX [Concomitant]
     Indication: ANXIETY
     Route: 048
  8. SIMVASTATIN [Concomitant]
     Indication: BLOOD CHOLESTEROL
     Dosage: 20 MILLIGRAM DAILY;
     Route: 048
  9. TOPIRAMATE [Concomitant]
     Indication: HEMIPLEGIC MIGRAINE
     Dosage: 50 MILLIGRAM DAILY;
     Route: 048
  10. IBUPROFEN [Concomitant]
     Indication: PAIN
     Route: 048
  11. BOTULINUM TOXIN TYPE A [Concomitant]
     Indication: MIGRAINE
     Dosage: 2.2222 IU (INTERNATIONAL UNIT) DAILY;
  12. BOTULINUM TOXIN TYPE A [Concomitant]
     Indication: FIBROMYALGIA
  13. OXYCODONE HYDROCHLORIDE [Concomitant]
     Indication: PAIN
     Dosage: 20 MILLIGRAM DAILY;
     Route: 048
  14. OXYCODONE [Concomitant]
     Indication: BREAKTHROUGH PAIN

REACTIONS (4)
  - Migraine [Unknown]
  - Multiple fractures [Unknown]
  - Eye contusion [Recovered/Resolved]
  - Off label use [Unknown]
